FAERS Safety Report 9813644 (Version 1)
Quarter: 2014Q1

REPORT INFORMATION
  Report Type: Spontaneous
  Country: US (occurrence: US)
  Receive Date: 20140113
  Receipt Date: 20140113
  Transmission Date: 20141002
  Serious: Yes (Death)
  Sender: FDA-Public Use
  Company Number: US-BAYER-2014-004565

PATIENT
  Age: 25 Year
  Sex: Female

DRUGS (5)
  1. CHLOROQUINE [Suspect]
     Route: 048
  2. DIPHENHYDRAMINE HYDROCHLORIDE [Suspect]
     Route: 048
  3. ALPRAZOLAM [Suspect]
     Route: 048
  4. ZOLPIDEM [Suspect]
     Route: 048
  5. MIRTAZAPINE [Suspect]
     Route: 048

REACTIONS (1)
  - Toxicity to various agents [Fatal]
